FAERS Safety Report 9687148 (Version 2)
Quarter: 2013Q4

REPORT INFORMATION
  Report Type: Other
  Country: DK (occurrence: ES)
  Receive Date: 20131113
  Receipt Date: 20131220
  Transmission Date: 20140711
  Serious: Yes (Death)
  Sender: FDA-Public Use
  Company Number: ES-FRI-1000051050

PATIENT
  Age: 75 Year
  Sex: Male

DRUGS (5)
  1. CITALOPRAM [Suspect]
  2. FLURAZEPAM [Suspect]
  3. DIAZEPAM [Suspect]
  4. VENLAFAXINE [Suspect]
  5. TRAMADOL [Suspect]

REACTIONS (2)
  - Completed suicide [Fatal]
  - Toxicity to various agents [Fatal]
